FAERS Safety Report 5574251-7 (Version None)
Quarter: 2007Q4

REPORT INFORMATION
  Report Type: 
  Country: None (occurrence: None)
  Receive Date: 20071221
  Receipt Date: 20071211
  Transmission Date: 20080405
  Serious: Yes (Hospitalization)
  Sender: FDA-Public Use
  Company Number: TPA2007A02311

PATIENT
  Age: 71 Year
  Sex: Female

DRUGS (1)
  1. ACTOS [Suspect]
     Indication: HYPERTENSION
     Dosage: 2 MG, PER ORAL
     Route: 048

REACTIONS (4)
  - ANXIETY [None]
  - FEELING ABNORMAL [None]
  - HYPERTENSION [None]
  - PALPITATIONS [None]
